FAERS Safety Report 5818583-3 (Version None)
Quarter: 2008Q3

REPORT INFORMATION
  Report Type: 
  Country: None (occurrence: None)
  Receive Date: 20080717
  Receipt Date: 20080318
  Transmission Date: 20090109
  Serious: Yes (Other)
  Sender: FDA-Public Use
  Company Number: 2008006220

PATIENT
  Age: 46 Year
  Sex: Male
  Weight: 92.9874 kg

DRUGS (6)
  1. LUBRIDERM SKIN NOURISHING WITH OAT EXTRACT (NO ACTIVE INGREDIENT) [Suspect]
     Indication: DRY SKIN
     Dosage: ONE SQUIRT 3 X PER DAY,TOPICAL
     Route: 061
     Dates: start: 20080301
  2. SINGULAIR ^DIECKMANN^ (MONTELUKAST SODIUM) [Concomitant]
  3. TRIAMTERENE (TRIAMTERENE) [Concomitant]
  4. ALLEGRA [Concomitant]
  5. FLONASE [Concomitant]
  6. HYDROCHLOROTHIAZIDE [Concomitant]

REACTIONS (7)
  - DRY SKIN [None]
  - EYE SWELLING [None]
  - HYPERAESTHESIA [None]
  - INFLAMMATION [None]
  - PAIN [None]
  - SCAB [None]
  - SKIN EXFOLIATION [None]
